FAERS Safety Report 24663133 (Version 1)
Quarter: 2024Q4

REPORT INFORMATION
  Report Type: Spontaneous
  Country: NL (occurrence: NL)
  Receive Date: 20241126
  Receipt Date: 20241126
  Transmission Date: 20250114
  Serious: Yes (Other)
  Sender: MERCK
  Company Number: NL-009507513-2404NLD006062

PATIENT
  Age: 61 Year
  Sex: Female

DRUGS (2)
  1. PEMBROLIZUMAB [Suspect]
     Active Substance: PEMBROLIZUMAB
     Indication: Non-small cell lung cancer metastatic
     Dosage: UNK, EVERY 6 WEEKS
  2. PEMBROLIZUMAB [Suspect]
     Active Substance: PEMBROLIZUMAB
     Dosage: UNK, EVERY 6 WEEKS

REACTIONS (14)
  - Hepatitis [Unknown]
  - Malignant neoplasm progression [Unknown]
  - Immune-mediated adverse reaction [Unknown]
  - Panic disorder [Unknown]
  - Fatigue [Unknown]
  - Balance disorder [Not Recovered/Not Resolved]
  - Arthralgia [Unknown]
  - Myalgia [Unknown]
  - Mental disorder [Unknown]
  - Hypotonia [Unknown]
  - Visual impairment [Unknown]
  - Muscular weakness [Unknown]
  - Dysphonia [Unknown]
  - Crying [Unknown]

NARRATIVE: CASE EVENT DATE: 20230101
